FAERS Safety Report 11347488 (Version 1)
Quarter: 2015Q3

REPORT INFORMATION
  Report Type: Spontaneous
  Country: US (occurrence: US)
  Receive Date: 20150806
  Receipt Date: 20150806
  Transmission Date: 20151125
  Serious: Yes (Other)
  Sender: FDA-Public Use
  Company Number: US-DSJP-DSU-2015-124440

PATIENT

DRUGS (4)
  1. LISINOPRIL. [Concomitant]
     Active Substance: LISINOPRIL
     Indication: PRODUCT USED FOR UNKNOWN INDICATION
  2. COREG CR [Suspect]
     Active Substance: CARVEDILOL PHOSPHATE
     Indication: HYPERTENSION
     Dosage: 80 MG, UNK
     Dates: start: 20150323
  3. BENICAR [Suspect]
     Active Substance: OLMESARTAN MEDOXOMIL
     Indication: PRODUCT USED FOR UNKNOWN INDICATION
  4. SYNTHROID [Suspect]
     Active Substance: LEVOTHYROXINE SODIUM
     Indication: PRODUCT USED FOR UNKNOWN INDICATION
     Dosage: UNK

REACTIONS (10)
  - Head injury [Unknown]
  - Fall [Unknown]
  - Limb injury [Unknown]
  - Pain [Unknown]
  - Back injury [Unknown]
  - Hypotension [Unknown]
  - Ligament sprain [Unknown]
  - Loss of consciousness [Unknown]
  - Face injury [Unknown]
  - Laceration [Unknown]

NARRATIVE: CASE EVENT DATE: 201505
